FAERS Safety Report 8493932-9 (Version None)
Quarter: 2012Q3

REPORT INFORMATION
  Report Type: 
  Country: None (occurrence: None)
  Receive Date: 20120709
  Receipt Date: 20120628
  Transmission Date: 20120928
  Serious: Yes (Hospitalization)
  Sender: FDA-Public Use
  Company Number: CA-BRISTOL-MYERS SQUIBB COMPANY-16689234

PATIENT
  Age: 36 Year
  Sex: Male

DRUGS (15)
  1. ORENCIA [Suspect]
     Indication: PSORIATIC ARTHROPATHY
     Dosage: 37 INFUSIONS,LAST INFUSION:24MAY2012
     Route: 042
     Dates: start: 20090824
  2. FOSAMAX [Concomitant]
  3. ARAVA [Concomitant]
  4. ISONIAZID [Concomitant]
  5. ALTACE [Concomitant]
  6. DOCUSATE [Concomitant]
  7. CYCLOBENZAPRINE [Concomitant]
  8. PLAQUENIL [Concomitant]
  9. SORIATANE [Concomitant]
     Dosage: SORIATANE DOVOBET
  10. PREDNISONE [Concomitant]
  11. NAPROSYN [Concomitant]
  12. NEXIUM [Concomitant]
  13. SULFASALAZINE [Concomitant]
  14. CALCIUM [Concomitant]
  15. MYOCHRYSINE [Concomitant]

REACTIONS (1)
  - NEPHROLITHIASIS [None]
